FAERS Safety Report 25649549 (Version 1)
Quarter: 2025Q3

REPORT INFORMATION
  Report Type: Spontaneous
  Country: US (occurrence: US)
  Receive Date: 20250806
  Receipt Date: 20250806
  Transmission Date: 20251021
  Serious: No
  Sender: AMGEN
  Company Number: US-AMGEN-USASP2025155815

PATIENT
  Age: 82 Year
  Sex: Male

DRUGS (12)
  1. OTEZLA [Suspect]
     Active Substance: APREMILAST
     Indication: Psoriasis
     Dosage: 30 MILLIGRAM, BID
     Route: 048
     Dates: start: 20240618
  2. ASPIRIN [Concomitant]
     Active Substance: ASPIRIN
  3. BETAMETHASONE DIPROPIONATE [Concomitant]
     Active Substance: BETAMETHASONE DIPROPIONATE
  4. LOSARTAN [Concomitant]
     Active Substance: LOSARTAN
  5. DILTIAZEM [Concomitant]
     Active Substance: DILTIAZEM
     Dosage: 180 MILLIGRAM, QD
  6. METFORMIN [Concomitant]
     Active Substance: METFORMIN HYDROCHLORIDE
  7. METOPROLOL SUCCINATE [Concomitant]
     Active Substance: METOPROLOL SUCCINATE
  8. PRADAXA [Concomitant]
     Active Substance: DABIGATRAN ETEXILATE MESYLATE
  9. TAMSULOSIN [Concomitant]
     Active Substance: TAMSULOSIN
  10. ATORVASTATIN [Concomitant]
     Active Substance: ATORVASTATIN
  11. DUTASTERIDE [Concomitant]
     Active Substance: DUTASTERIDE
  12. VITAMIN B12 [Concomitant]
     Active Substance: CYANOCOBALAMIN

REACTIONS (1)
  - Psoriasis [Not Recovered/Not Resolved]

NARRATIVE: CASE EVENT DATE: 20250701
